FAERS Safety Report 4395462-2 (Version None)
Quarter: 2004Q3

REPORT INFORMATION
  Report Type: 
  Country: None (occurrence: None)
  Receive Date: 20040712
  Receipt Date: 20040712
  Transmission Date: 20050211
  Serious: Yes (Disabling)
  Sender: FDA-Public Use
  Company Number: None

PATIENT
  Age: 34 Year
  Sex: Female
  Weight: 87.5442 kg

DRUGS (5)
  1. CIPRO [Suspect]
     Indication: FACIAL PAIN
     Dosage: 1IN SURGE INTRAVENOUS
     Route: 042
     Dates: start: 20040615, end: 20040615
  2. CIPRO [Suspect]
     Indication: OSTEOMYELITIS
     Dosage: 1IN SURGE INTRAVENOUS
     Route: 042
     Dates: start: 20040615, end: 20040615
  3. CIPROFLOXACIN [Suspect]
     Indication: FACIAL PAIN
     Dosage: 750 MG TWICE DAIL ORAL
     Route: 048
     Dates: start: 20040616, end: 20040622
  4. CIPROFLOXACIN [Suspect]
     Indication: OSTEOMYELITIS
     Dosage: 750 MG TWICE DAIL ORAL
     Route: 048
     Dates: start: 20040616, end: 20040622
  5. CHLORPHENIRAMINE MALEATE [Concomitant]

REACTIONS (4)
  - ARTHRALGIA [None]
  - CONDITION AGGRAVATED [None]
  - INFLAMMATION [None]
  - TENDON DISORDER [None]
